FAERS Safety Report 9496873 (Version 1)
Quarter: 2013Q3

REPORT INFORMATION
  Report Type: Spontaneous
  Country: FR (occurrence: FR)
  Receive Date: 20130904
  Receipt Date: 20130904
  Transmission Date: 20140515
  Serious: Yes (Hospitalization, Other)
  Sender: FDA-Public Use
  Company Number: FR-ASTRAZENECA-2013SE66318

PATIENT
  Age: 33123 Day
  Sex: Female

DRUGS (12)
  1. MOPRAL [Suspect]
     Indication: GASTRIC DISORDER
     Route: 048
     Dates: start: 20130719, end: 20130723
  2. COTAREG [Suspect]
     Indication: HYPERTENSION
     Dosage: 160 MG VALSARTAN/12.5 MG HYDROCHLOROTHIAZIDE, 1 DF DAILY, LONG LASTING TREATMENT
     Route: 048
     Dates: end: 20130723
  3. VOLTARENE [Suspect]
     Indication: CRANIAL NERVE DISORDER
     Dosage: 75 MG SR EVERY DAY
     Route: 048
     Dates: start: 20130719, end: 20130723
  4. PRAVASTATINE SODIQUE [Concomitant]
     Indication: HYPERCHOLESTEROLAEMIA
     Route: 048
     Dates: end: 20130723
  5. LEVOTHYROX [Concomitant]
     Indication: HYPOTHYROIDISM
     Route: 048
     Dates: end: 20130723
  6. LOXEN [Concomitant]
     Indication: HYPERTENSION
     Route: 048
     Dates: end: 20130723
  7. VERATRAN [Concomitant]
     Indication: CRANIAL NERVE DISORDER
     Route: 048
     Dates: end: 20130723
  8. LAMALINE [Concomitant]
     Indication: CRANIAL NERVE DISORDER
     Route: 048
     Dates: start: 20130719, end: 20130723
  9. DOLIPRANE [Concomitant]
     Indication: PAIN
     Route: 048
     Dates: start: 20130721, end: 20130723
  10. SOLUPRED [Concomitant]
     Route: 048
     Dates: start: 20130721, end: 20130723
  11. STILNOX [Concomitant]
     Route: 048
     Dates: start: 20130719, end: 20130723
  12. IMOVANE [Concomitant]
     Route: 048
     Dates: end: 20130723

REACTIONS (5)
  - Acute coronary syndrome [Unknown]
  - Hyponatraemia [Recovering/Resolving]
  - Inflammation [Unknown]
  - Hypochloraemia [Unknown]
  - Blood osmolarity decreased [Unknown]
